FAERS Safety Report 9415672 (Version 1)
Quarter: 2013Q3

REPORT INFORMATION
  Report Type: Spontaneous
  Country: US (occurrence: US)
  Receive Date: 20130723
  Receipt Date: 20130723
  Transmission Date: 20140515
  Serious: Yes (Other)
  Sender: FDA-Public Use
  Company Number: US-WATSON-2013-12524

PATIENT
  Age: 54 Year
  Sex: Female
  Weight: 88 kg

DRUGS (3)
  1. OXYCODONE HYDROCHLORIDE-APAP (WATSON LABORATORIES) [Suspect]
     Indication: ANALGESIC THERAPY
     Dosage: 10/325MG EVERY 6 HOURS
     Route: 065
     Dates: start: 20130524, end: 20130601
  2. OXYCODONE [Suspect]
     Indication: PRODUCT USED FOR UNKNOWN INDICATION
     Dosage: 5 MG, DAILY
     Route: 065
     Dates: start: 20130525, end: 20130528
  3. IODORAL [Concomitant]
     Indication: THYROID DISORDER
     Dosage: 25-50 MG, AS NEEDED

REACTIONS (9)
  - Adrenal gland injury [Unknown]
  - Thyroid disorder [Unknown]
  - Withdrawal syndrome [Unknown]
  - Hyperhidrosis [Unknown]
  - Flushing [Unknown]
  - Influenza like illness [Unknown]
  - Aggression [Unknown]
  - Agitation [Unknown]
  - Euphoric mood [Unknown]
